FAERS Safety Report 7652323-0 (Version None)
Quarter: 2011Q3

REPORT INFORMATION
  Report Type: 
  Country: None (occurrence: None)
  Receive Date: 20110803
  Receipt Date: 20110721
  Transmission Date: 20111222
  Serious: Yes (Life-Threatening, Hospitalization)
  Sender: FDA-Public Use
  Company Number: FR-KINGPHARMUSA00001-K201100849

PATIENT
  Age: 78 Year
  Sex: Male

DRUGS (5)
  1. ALTACE [Suspect]
     Dosage: 10 MG, QD
     Route: 048
     Dates: start: 20101101, end: 20110201
  2. HYDROCHLOROTHIAZIDE [Suspect]
     Dosage: 25 MG, QD
     Route: 048
     Dates: start: 20110202, end: 20110208
  3. ALISKIREN [Suspect]
     Dosage: UNK
     Route: 042
     Dates: start: 20110202, end: 20110206
  4. FUROSEMIDE [Suspect]
     Indication: OEDEMA
     Dosage: UNK
     Dates: start: 20110202, end: 20110206
  5. PLAVIX [Suspect]
     Dosage: 75 MG, QD
     Route: 048
     Dates: start: 20110202, end: 20110209

REACTIONS (4)
  - CARDIAC FAILURE [None]
  - DYSPNOEA [None]
  - RENAL FAILURE ACUTE [None]
  - BLOOD CREATININE INCREASED [None]
